FAERS Safety Report 19596890 (Version 1)
Quarter: 2021Q3

REPORT INFORMATION
  Report Type: Spontaneous
  Country: IN (occurrence: IN)
  Receive Date: 20210723
  Receipt Date: 20210723
  Transmission Date: 20211014
  Serious: Yes (Life-Threatening, Other)
  Sender: FDA-Public Use
  Company Number: IN-TORRENT-00002851

PATIENT
  Age: 20 Year
  Sex: Male

DRUGS (2)
  1. RISPERIDONE. [Suspect]
     Active Substance: RISPERIDONE
     Indication: SCHIZOPHRENIA
  2. TRIHEXYPHENIDYL [Suspect]
     Active Substance: TRIHEXYPHENIDYL
     Indication: EXTRAPYRAMIDAL DISORDER

REACTIONS (4)
  - Blepharospasm [Recovered/Resolved]
  - Respiratory distress [Recovered/Resolved]
  - Spasmodic dysphonia [Recovered/Resolved]
  - Dystonia [Recovered/Resolved]
